FAERS Safety Report 8233616-5 (Version None)
Quarter: 2012Q1

REPORT INFORMATION
  Report Type: 
  Country: None (occurrence: None)
  Receive Date: 20120326
  Receipt Date: 20120315
  Transmission Date: 20120608
  Serious: Yes (Other)
  Sender: FDA-Public Use
  Company Number: PHHY2012BR023832

PATIENT

DRUGS (1)
  1. CERTICAN [Suspect]

REACTIONS (2)
  - JOINT EFFUSION [None]
  - DEEP VEIN THROMBOSIS [None]
